FAERS Safety Report 21905050 (Version 1)
Quarter: 2023Q1

REPORT INFORMATION
  Report Type: Spontaneous
  Country: US (occurrence: US)
  Receive Date: 20230124
  Receipt Date: 20230124
  Transmission Date: 20230418
  Serious: No
  Sender: FDA-Public Use
  Company Number: US-ABBVIE-4266497

PATIENT
  Age: 36 Year
  Sex: Female
  Weight: 86.182 kg

DRUGS (4)
  1. ORIAHNN [Suspect]
     Active Substance: ELAGOLIX SODIUM\ESTRADIOL\NORETHINDRONE
     Indication: Uterine leiomyoma
     Dosage: 1 CAPSULE,?FREQUENCY TEXT: 1 CAPSULE IN MORNING AND 1 IN EVENING
     Route: 048
     Dates: start: 202203
  2. ORIAHNN [Suspect]
     Active Substance: ELAGOLIX SODIUM\ESTRADIOL\NORETHINDRONE
     Indication: Uterine leiomyoma
     Dosage: 1 CAPSULE,?FREQUENCY TEXT: 1 CAPSULE IN MORNING AND 1 IN EVENING
     Route: 048
     Dates: start: 202112, end: 202112
  3. ORIAHNN [Suspect]
     Active Substance: ELAGOLIX SODIUM\ESTRADIOL\NORETHINDRONE
     Indication: Uterine leiomyoma
     Dosage: 1 CAPSULE,?FREQUENCY TEXT: 1 CAPSULE IN MORNING AND 1 IN EVENING
     Route: 048
     Dates: start: 202112, end: 202112
  4. ORIAHNN [Suspect]
     Active Substance: ELAGOLIX SODIUM\ESTRADIOL\NORETHINDRONE
     Indication: Uterine leiomyoma
     Dosage: 1 CAPSULE,?FREQUENCY TEXT: 1 CAPSULE IN MORNING AND 1 IN EVENING
     Route: 048
     Dates: start: 202203

REACTIONS (3)
  - Amenorrhoea [Not Recovered/Not Resolved]
  - Headache [Recovered/Resolved]
  - Intermenstrual bleeding [Recovered/Resolved]

NARRATIVE: CASE EVENT DATE: 20220301
